FAERS Safety Report 14924796 (Version 1)
Quarter: 2018Q2

REPORT INFORMATION
  Report Type: Spontaneous
  Country: US (occurrence: US)
  Receive Date: 20180522
  Receipt Date: 20180522
  Transmission Date: 20180711
  Serious: No
  Sender: FDA-Public Use
  Company Number: US-TARO-2017TAR00375

PATIENT
  Sex: Female
  Weight: 82.54 kg

DRUGS (7)
  1. MELOXICAM. [Concomitant]
     Active Substance: MELOXICAM
     Dosage: 5 MG, 1X/DAY
  2. NIFEDIPINE. [Concomitant]
     Active Substance: NIFEDIPINE
     Dosage: 90 MG, 1X/DAY
  3. CLOTRIMAZOLE VAGINAL CREAM USP 2% 3 DAY [Suspect]
     Active Substance: CLOTRIMAZOLE
     Indication: VULVOVAGINAL PRURITUS
     Dosage: UNK, AS DIRECTED 2 TIMES, ONE 2 MONTHS AGO AND MOST RECENTLY 3 WEEKS AGO
     Route: 067
     Dates: start: 201703
  4. CLOTRIMAZOLE VAGINAL CREAM USP 2% 3 DAY [Suspect]
     Active Substance: CLOTRIMAZOLE
     Dosage: UNK
     Route: 067
     Dates: start: 2017, end: 2017
  5. METOPROLOL. [Concomitant]
     Active Substance: METOPROLOL
     Dosage: 60 MG, 2X/DAY
  6. CLONIDINE. [Concomitant]
     Active Substance: CLONIDINE
     Dosage: 2 G, UNK
  7. ASPIRIN. [Concomitant]
     Active Substance: ASPIRIN
     Dosage: 8 MG, 1X/DAY

REACTIONS (3)
  - Rash [Not Recovered/Not Resolved]
  - Urinary incontinence [Not Recovered/Not Resolved]
  - Dysuria [Not Recovered/Not Resolved]
